FAERS Safety Report 10884507 (Version 1)
Quarter: 2015Q1

REPORT INFORMATION
  Report Type: Spontaneous
  Country: IT (occurrence: None)
  Receive Date: 20150227
  Receipt Date: 20150227
  Transmission Date: 20150721
  Serious: Yes (Other)
  Sender: FDA-Public Use
  Company Number: 2753487

PATIENT
  Age: 67 Year
  Sex: Female

DRUGS (2)
  1. CAPECITABINE. [Concomitant]
     Active Substance: CAPECITABINE
  2. OXALIPLATIN. [Suspect]
     Active Substance: OXALIPLATIN
     Indication: ADENOCARCINOMA OF COLON
     Dosage: 200 MG MILLIGRAM(S) (CYCLICAL) INTRAVENOS (NOT OTHERWISE SPECIFIED)
     Route: 042
     Dates: start: 20120820, end: 20120911

REACTIONS (2)
  - Dysarthria [None]
  - Dysphonia [None]

NARRATIVE: CASE EVENT DATE: 20120911
